FAERS Safety Report 6339826-6 (Version None)
Quarter: 2009Q3

REPORT INFORMATION
  Report Type: 
  Country: None (occurrence: None)
  Receive Date: 20090903
  Receipt Date: 20090825
  Transmission Date: 20100115
  Serious: Yes (Hospitalization, Other)
  Sender: FDA-Public Use
  Company Number: PHHO2008JP12279

PATIENT
  Sex: Male
  Weight: 70 kg

DRUGS (22)
  1. RAD 666 RAD+TAB+PTR [Suspect]
     Indication: RENAL TRANSPLANT
     Dosage: 0.75 MG DAILY
     Route: 048
     Dates: start: 20080925, end: 20080925
  2. RAD 666 RAD+TAB+PTR [Suspect]
     Dosage: 1.5 MG DAILY
     Route: 048
     Dates: start: 20080926, end: 20080927
  3. RAD 666 RAD+TAB+PTR [Suspect]
     Dosage: 0.75 MG DAILY
     Route: 048
     Dates: start: 20080928, end: 20080928
  4. RAD 666 RAD+TAB+PTR [Suspect]
     Dosage: 1.5 MG DAILY
     Route: 048
     Dates: start: 20080929, end: 20080929
  5. RAD 666 RAD+TAB+PTR [Suspect]
     Dosage: 0.75 MG DAILY
     Route: 048
     Dates: start: 20080930, end: 20080930
  6. NEORAL [Suspect]
     Indication: RENAL TRANSPLANT
     Dosage: 560 MG DAILY
     Route: 048
     Dates: start: 20080920, end: 20080921
  7. NEORAL [Suspect]
     Dosage: 280 MG DAILY
     Route: 048
     Dates: start: 20080922, end: 20080922
  8. NEORAL [Suspect]
     Dosage: 250 MG DAILY
     Route: 048
     Dates: start: 20080923, end: 20080923
  9. NEORAL [Suspect]
     Dosage: 180 MG DAILY
     Route: 048
     Dates: start: 20080925, end: 20080925
  10. NEORAL [Suspect]
     Dosage: 460 MG DAILY
     Route: 048
     Dates: start: 20080926, end: 20080926
  11. NEORAL [Suspect]
     Dosage: 560 MG DAILY
     Route: 048
     Dates: start: 20080927, end: 20080927
  12. NEORAL [Suspect]
     Dosage: 280 MG DAILY
     Route: 048
     Dates: start: 20080928, end: 20080928
  13. NEORAL [Suspect]
     Dosage: 560 MG DAILY
     Route: 048
     Dates: start: 20080929, end: 20080929
  14. NEORAL [Suspect]
     Dosage: 280 MG DAILY
     Route: 048
     Dates: start: 20080930, end: 20080930
  15. SIMULECT [Suspect]
     Indication: RENAL TRANSPLANT
     Dosage: 20 MG, ONCE/SINGLE
     Route: 042
     Dates: start: 20080924, end: 20080924
  16. SIMULECT [Suspect]
     Dosage: 20 MG, ONCE/SINGLE
     Route: 042
     Dates: start: 20080928, end: 20080928
  17. SANDIMMUNE [Concomitant]
     Indication: RENAL TRANSPLANT
     Route: 042
  18. SOLU-MEDROL [Concomitant]
     Indication: RENAL TRANSPLANT
     Dosage: UNK
  19. PREDONINE [Concomitant]
     Indication: RENAL TRANSPLANT
  20. HAEMODIALYSIS [Concomitant]
  21. CELLCEPT [Concomitant]
     Indication: RENAL TRANSPLANT
  22. PROGRAF [Concomitant]
     Indication: RENAL TRANSPLANT

REACTIONS (17)
  - ANAEMIA [None]
  - CHEST DISCOMFORT [None]
  - DRUG INEFFECTIVE [None]
  - EXPLORATIVE LAPAROTOMY [None]
  - FEELING ABNORMAL [None]
  - GRAFT COMPLICATION [None]
  - HAEMODIALYSIS [None]
  - HYPERSENSITIVITY [None]
  - KIDNEY TRANSPLANT REJECTION [None]
  - REMOVAL OF RENAL TRANSPLANT [None]
  - RENAL IMPAIRMENT [None]
  - RENAL TUBULAR NECROSIS [None]
  - SPLENOMEGALY [None]
  - SUBCUTANEOUS HAEMATOMA [None]
  - THROMBOCYTOPENIA [None]
  - VASCULAR GRAFT COMPLICATION [None]
  - VOMITING [None]
